FAERS Safety Report 7811324-X (Version None)
Quarter: 2011Q4

REPORT INFORMATION
  Report Type: 
  Country: None (occurrence: None)
  Receive Date: 20111012
  Receipt Date: 20111012
  Transmission Date: 20120403
  Serious: Yes (Life-Threatening)
  Sender: FDA-Public Use
  Company Number: None

PATIENT
  Age: 83 Year
  Sex: Male

DRUGS (1)
  1. ETANERCEPT AMGEN [Suspect]
     Dosage: ONCE

REACTIONS (6)
  - RESPIRATORY DISORDER [None]
  - ABASIA [None]
  - OXYGEN SATURATION DECREASED [None]
  - ACTIVITIES OF DAILY LIVING IMPAIRED [None]
  - COUGH [None]
  - MALAISE [None]
